FAERS Safety Report 10434541 (Version 1)
Quarter: 2014Q3

REPORT INFORMATION
  Report Type: Spontaneous
  Country: SE (occurrence: SE)
  Receive Date: 20140905
  Receipt Date: 20140905
  Transmission Date: 20150326
  Serious: Yes (Other)
  Sender: FDA-Public Use
  Company Number: SE-PFIZER INC-2014247128

PATIENT
  Age: 30 Year
  Sex: Male

DRUGS (6)
  1. PROPAVAN [Suspect]
     Active Substance: PROPIOMAZINE
     Dosage: UNK
  2. SUBUTEX [Suspect]
     Active Substance: BUPRENORPHINE HYDROCHLORIDE
     Dosage: UNK
  3. CATAPRESAN [Concomitant]
     Active Substance: CLONIDINE
     Dosage: UNK
  4. STESOLID [Suspect]
     Active Substance: DIAZEPAM
     Dosage: 10-50 MG DAILY
  5. XANOR [Suspect]
     Active Substance: ALPRAZOLAM
     Dosage: UNK
  6. THERALEN [Suspect]
     Active Substance: TRIMEPRAZINE
     Dosage: UNK

REACTIONS (1)
  - Drug abuser [Not Recovered/Not Resolved]
